FAERS Safety Report 9912608 (Version 1)
Quarter: 2014Q1

REPORT INFORMATION
  Report Type: Report from Study
  Country: US (occurrence: US)
  Receive Date: 20140220
  Receipt Date: 20140220
  Transmission Date: 20141002
  Serious: Yes (Other)
  Sender: FDA-Public Use
  Company Number: US-ROCHE-1347587

PATIENT
  Age: 78 Year
  Sex: Male

DRUGS (1)
  1. CAPECITABINE [Suspect]
     Indication: TRANSITIONAL CELL CARCINOMA
     Route: 048

REACTIONS (4)
  - Diarrhoea [Unknown]
  - Pulmonary fibrosis [Unknown]
  - Dehydration [Unknown]
  - Sepsis [Unknown]
